FAERS Safety Report 6792355-8 (Version None)
Quarter: 2010Q2

REPORT INFORMATION
  Report Type: 
  Country: None (occurrence: None)
  Receive Date: 20100624
  Receipt Date: 20080801
  Transmission Date: 20101027
  Serious: No
  Sender: FDA-Public Use
  Company Number: US-PFIZER INC-2008065050

PATIENT
  Sex: Male
  Weight: 159.1 kg

DRUGS (5)
  1. SUTENT [Suspect]
     Indication: RENAL CANCER METASTATIC
     Dates: start: 20080728
  2. VICODIN [Concomitant]
  3. WARFARIN [Concomitant]
  4. METFORMIN HCL [Concomitant]
     Indication: DIABETES MELLITUS
  5. MACROBID [Concomitant]

REACTIONS (1)
  - NAUSEA [None]
